FAERS Safety Report 12876516 (Version 1)
Quarter: 2016Q4

REPORT INFORMATION
  Report Type: Spontaneous
  Country: US (occurrence: US)
  Receive Date: 20161021
  Receipt Date: 20161021
  Transmission Date: 20170207
  Serious: Yes (Hospitalization)
  Sender: FDA-Public Use
  Company Number: None

PATIENT
  Sex: Female
  Weight: 54 kg

DRUGS (1)
  1. TEMOZOLOMIDE. [Suspect]
     Active Substance: TEMOZOLOMIDE
     Dosage: SAE NOTED WITHIN FOLLOW-UP PERIOD FOLLOWING PROGRESSION
     Dates: end: 20160226

REACTIONS (6)
  - Bone pain [None]
  - Hypoxia [None]
  - Pneumonia [None]
  - Lung infiltration [None]
  - Lung consolidation [None]
  - Back pain [None]

NARRATIVE: CASE EVENT DATE: 20160408
